FAERS Safety Report 13374651 (Version 1)
Quarter: 2017Q1

REPORT INFORMATION
  Report Type: Spontaneous
  Country: ES (occurrence: ES)
  Receive Date: 20170327
  Receipt Date: 20170327
  Transmission Date: 20170429
  Serious: Yes (Hospitalization)
  Sender: FDA-Public Use
  Company Number: ES-TEVA-751986ISR

PATIENT
  Age: 81 Year
  Sex: Female

DRUGS (4)
  1. PECFENT [Suspect]
     Active Substance: FENTANYL CITRATE
     Route: 045
     Dates: start: 201302, end: 20140319
  2. ACTIQ [Suspect]
     Active Substance: FENTANYL CITRATE
     Indication: PAIN
     Dosage: 100 MICROGRAM DAILY;
     Route: 002
     Dates: start: 20140319, end: 20140402
  3. PECFENT [Suspect]
     Active Substance: FENTANYL CITRATE
     Indication: SCIATICA
     Dosage: 200 MICROGRAM DAILY;
     Route: 045
     Dates: start: 20150506
  4. ABSTRAL [Suspect]
     Active Substance: FENTANYL CITRATE
     Indication: PAIN
     Dosage: 100 MICROGRAM DAILY;
     Route: 048
     Dates: start: 20140319, end: 20140402

REACTIONS (4)
  - Drug abuse [Not Recovered/Not Resolved]
  - Drug dependence [Not Recovered/Not Resolved]
  - Cognitive disorder [Not Recovered/Not Resolved]
  - Off label use [Not Recovered/Not Resolved]

NARRATIVE: CASE EVENT DATE: 2015
